FAERS Safety Report 16773551 (Version 1)
Quarter: 2019Q3

REPORT INFORMATION
  Report Type: Spontaneous
  Country: PL (occurrence: PL)
  Receive Date: 20190904
  Receipt Date: 20190904
  Transmission Date: 20191005
  Serious: Yes (Other)
  Sender: FDA-Public Use
  Company Number: PHHY2019PL203597

PATIENT
  Age: 71 Year
  Sex: Female

DRUGS (2)
  1. RIBOCICLIB. [Suspect]
     Active Substance: RIBOCICLIB
     Indication: INVASIVE LOBULAR BREAST CARCINOMA
     Route: 065
  2. LETROZOLE. [Suspect]
     Active Substance: LETROZOLE
     Indication: INVASIVE LOBULAR BREAST CARCINOMA
     Route: 065

REACTIONS (23)
  - Metastases to bone [Unknown]
  - Metastases to lung [Unknown]
  - Neutrophil count decreased [Unknown]
  - Pulmonary fibrosis [Unknown]
  - Cardiac murmur [Unknown]
  - Metastases to lymph nodes [Unknown]
  - Atrial fibrillation [Unknown]
  - Telangiectasia [Unknown]
  - Rales [Unknown]
  - Ulcer haemorrhage [Unknown]
  - Metastases to spine [Unknown]
  - Metastases to liver [Unknown]
  - Left atrial enlargement [Unknown]
  - White blood cell count decreased [Unknown]
  - Thoracic vertebral fracture [Unknown]
  - Squamous cell carcinoma [Unknown]
  - Electrocardiogram Q wave abnormal [Unknown]
  - Skin discolouration [Unknown]
  - Second primary malignancy [Unknown]
  - Arteriosclerosis [Unknown]
  - Heart rate irregular [Unknown]
  - Scar [Unknown]
  - Aortic aneurysm [Unknown]
